FAERS Safety Report 9410520 (Version 1)
Quarter: 2013Q3

REPORT INFORMATION
  Report Type: Spontaneous
  Country: US (occurrence: US)
  Receive Date: 20130719
  Receipt Date: 20130719
  Transmission Date: 20140515
  Serious: Yes (Other)
  Sender: FDA-Public Use
  Company Number: US-ACTAVIS-2013-12185

PATIENT
  Sex: Female

DRUGS (1)
  1. ALPRAZOLAM (AELLC) [Suspect]
     Indication: INSOMNIA
     Route: 048

REACTIONS (7)
  - Dependence [Unknown]
  - Sedation [Unknown]
  - Somnolence [Unknown]
  - Vision blurred [Unknown]
  - Nervousness [Unknown]
  - Vision blurred [None]
  - Nervousness [None]
